FAERS Safety Report 5845615-9 (Version None)
Quarter: 2008Q3

REPORT INFORMATION
  Report Type: 
  Country: None (occurrence: None)
  Receive Date: 20080814
  Receipt Date: 20080806
  Transmission Date: 20090109
  Serious: Yes (Hospitalization)
  Sender: FDA-Public Use
  Company Number: US-SANOFI-SYNTHELABO-D01200705170

PATIENT
  Sex: Female
  Weight: 75.8 kg

DRUGS (15)
  1. CLOPIDOGREL [Suspect]
     Indication: ACUTE CORONARY SYNDROME
     Dosage: 300 MG (+PLACEBO) D1 FOLLOWED BY 75 MG (+PLACEBO) D2 TO D7; 75 MG FROM D8 TO 30
     Route: 048
  2. COMBIVENT [Concomitant]
  3. SLOW MAG [Concomitant]
  4. POTASSIUM CHLORIDE [Concomitant]
  5. DILTIAZEM HCL [Concomitant]
  6. NEXIUM [Concomitant]
  7. CLONAZEPAM [Concomitant]
  8. EFFEXOR [Concomitant]
  9. REGLAN [Concomitant]
  10. HYDROCODONE BITARTRATE [Concomitant]
  11. LEVOTHYROXINE SODIUM [Concomitant]
  12. MICARDIS [Concomitant]
  13. AMITRIPTYLINE HCL [Concomitant]
  14. ASA LOW DOSE [Concomitant]
     Indication: ACUTE CORONARY SYNDROME
     Dosage: AT LEAST 300 MG D1; 75-100 MG FROM D2 TO D30
     Route: 048
     Dates: start: 20070724
  15. CLOPIDOGREL [Suspect]
     Indication: ACUTE CORONARY SYNDROME
     Dosage: 600 MG LD D1 FOLLOWED BY 150 MG FROM D2 TO D7; 75 MG FROM D8 TO 30
     Route: 048
     Dates: start: 20070724, end: 20070729

REACTIONS (1)
  - GASTROENTERITIS [None]
